FAERS Safety Report 5638249-2 (Version None)
Quarter: 2008Q1

REPORT INFORMATION
  Report Type: 
  Country: None (occurrence: None)
  Receive Date: 20080220
  Receipt Date: 20080211
  Transmission Date: 20080703
  Serious: Yes (Hospitalization, Other)
  Sender: FDA-Public Use
  Company Number: 023943

PATIENT
  Age: 43 Year
  Sex: Female

DRUGS (4)
  1. LITHIUM CARBONATE [Suspect]
     Indication: BIPOLAR DISORDER
     Dosage: 600 MG, BID
  2. NAPROXEN [Concomitant]
  3. AMITRIPTYLINE HCL [Concomitant]
  4. MIRTAZAPINE [Concomitant]

REACTIONS (12)
  - ANTIPSYCHOTIC DRUG LEVEL ABOVE THERAPEUTIC [None]
  - DEHYDRATION [None]
  - ELECTROCARDIOGRAM T WAVE AMPLITUDE DECREASED [None]
  - HAEMODIALYSIS [None]
  - HYPOCHLORAEMIA [None]
  - HYPOKALAEMIA [None]
  - HYPOTENSION [None]
  - HYPOTHERMIA [None]
  - METABOLIC ALKALOSIS [None]
  - RENAL FAILURE [None]
  - SINOATRIAL BLOCK [None]
  - SINUS BRADYCARDIA [None]
